FAERS Safety Report 25894185 (Version 2)
Quarter: 2025Q4

REPORT INFORMATION
  Report Type: Spontaneous
  Country: US (occurrence: US)
  Receive Date: 20251008
  Receipt Date: 20251223
  Transmission Date: 20260117
  Serious: No
  Sender: Thea Pharma
  Company Number: US-THEA-2025002213

PATIENT
  Age: 74 Year
  Sex: Female

DRUGS (1)
  1. IYUZEH [Suspect]
     Active Substance: LATANOPROST
     Indication: Product used for unknown indication
     Dosage: IN EACH EYE
     Route: 047
     Dates: start: 20250805, end: 202508

REACTIONS (2)
  - Eye irritation [Recovered/Resolved]
  - Eye pain [Recovered/Resolved]

NARRATIVE: CASE EVENT DATE: 20250806
